FAERS Safety Report 6035936-1 (Version None)
Quarter: 2009Q1

REPORT INFORMATION
  Report Type: 
  Country: None (occurrence: None)
  Receive Date: 20090113
  Receipt Date: 20090108
  Transmission Date: 20090719
  Serious: Yes (Hospitalization)
  Sender: FDA-Public Use
  Company Number: B0553133A

PATIENT
  Age: 88 Year
  Sex: Female

DRUGS (7)
  1. LANOXIN [Suspect]
     Dosage: .125MG PER DAY
     Route: 048
  2. VALSARTAN+HYDROCHLOROTHIAZIDE [Concomitant]
     Route: 048
  3. ISOSORBIDE MONONITRATE [Concomitant]
     Dosage: 60MG PER DAY
     Route: 048
  4. TICLOPIDINE HYDROCHLORIDE [Concomitant]
     Route: 048
  5. LANSOPRAZOLE [Concomitant]
     Dosage: 30MG PER DAY
     Route: 048
  6. ANTIDEPRESSANTS [Concomitant]
  7. MULTI-VITAMIN [Concomitant]

REACTIONS (34)
  - ACUTE PULMONARY OEDEMA [None]
  - BACTERIA URINE IDENTIFIED [None]
  - BLOOD CREATININE INCREASED [None]
  - BLOOD LACTATE DEHYDROGENASE INCREASED [None]
  - BLOOD POTASSIUM INCREASED [None]
  - BLOOD UREA INCREASED [None]
  - C-REACTIVE PROTEIN INCREASED [None]
  - CARDIAC FAILURE [None]
  - CARDIAC FAILURE CONGESTIVE [None]
  - CARDIOTHORACIC RATIO INCREASED [None]
  - CHOLELITHIASIS [None]
  - ESCHERICHIA URINARY TRACT INFECTION [None]
  - FATIGUE [None]
  - HAEMATURIA [None]
  - HAEMODYNAMIC REBOUND [None]
  - HERNIA [None]
  - HYPERGLYCAEMIA [None]
  - HYPOXIA [None]
  - KIDNEY SMALL [None]
  - LEUKOCYTURIA [None]
  - LUNG DISORDER [None]
  - NEPHROLITHIASIS [None]
  - NEUTROPHILIA [None]
  - PACEMAKER GENERATED RHYTHM [None]
  - PLEURAL EFFUSION [None]
  - PNEUMONIA [None]
  - PULMONARY OEDEMA [None]
  - RENAL ATROPHY [None]
  - RENAL FAILURE CHRONIC [None]
  - RENAL IMPAIRMENT [None]
  - RENAL SCAN ABNORMAL [None]
  - THERAPEUTIC AGENT TOXICITY [None]
  - URINARY TRACT INFECTION [None]
  - URINARY TRACT INFECTION FUNGAL [None]
